FAERS Safety Report 8104351-9 (Version None)
Quarter: 2012Q1

REPORT INFORMATION
  Report Type: 
  Country: None (occurrence: None)
  Receive Date: 20120130
  Receipt Date: 20120126
  Transmission Date: 20120608
  Serious: Yes (Hospitalization)
  Sender: FDA-Public Use
  Company Number: IT-BAYER-2012-008540

PATIENT
  Age: 76 Year
  Sex: Male

DRUGS (1)
  1. ASPIRIN [Suspect]
     Indication: PROPHYLAXIS
     Dosage: 100 MG, QD
     Route: 048
     Dates: start: 20110101, end: 20120102

REACTIONS (3)
  - CEREBRAL HAEMATOMA [None]
  - APHASIA [None]
  - VIITH NERVE PARALYSIS [None]
